FAERS Safety Report 10478592 (Version 2)
Quarter: 2014Q4

REPORT INFORMATION
  Report Type: Spontaneous
  Country: IT (occurrence: IT)
  Receive Date: 20140926
  Receipt Date: 20141209
  Transmission Date: 20150528
  Serious: Yes (Life-Threatening)
  Sender: FDA-Public Use
  Company Number: IT-BAYER-2014-137619

PATIENT
  Age: 19 Year
  Sex: Female

DRUGS (3)
  1. ASPIRINA [Suspect]
     Active Substance: ASPIRIN
     Indication: OROPHARYNGEAL PAIN
     Dosage: 500 MG, QOD
     Route: 048
     Dates: start: 20140906, end: 20140908
  2. OKI [Suspect]
     Active Substance: KETOPROFEN LYSINE
     Indication: OROPHARYNGEAL PAIN
     Dosage: 80 MG, ONCE
     Route: 048
     Dates: start: 20140907, end: 20140907
  3. TACHIPIRINA [Suspect]
     Active Substance: ACETAMINOPHEN
     Indication: PYREXIA
     Dosage: 500 MG, ONCE
     Route: 048
     Dates: start: 20140909, end: 20140909

REACTIONS (2)
  - Toxic epidermal necrolysis [Recovered/Resolved with Sequelae]
  - Dermatitis bullous [Recovered/Resolved with Sequelae]

NARRATIVE: CASE EVENT DATE: 20140909
